FAERS Safety Report 10389098 (Version 2)
Quarter: 2014Q3

REPORT INFORMATION
  Report Type: Spontaneous
  Country: JP (occurrence: JP)
  Receive Date: 20140817
  Receipt Date: 20140924
  Transmission Date: 20150326
  Serious: Yes (Other)
  Sender: FDA-Public Use
  Company Number: PHHY2011JP122170

PATIENT
  Age: 74 Year
  Sex: Male

DRUGS (9)
  1. AFINITOR [Suspect]
     Active Substance: EVEROLIMUS
     Dosage: 5 MG, UNK
  2. AFINITOR [Suspect]
     Active Substance: EVEROLIMUS
     Dosage: 5 MG, UNK
     Dates: end: 20111109
  3. AFINITOR [Suspect]
     Active Substance: EVEROLIMUS
     Indication: RENAL CANCER
     Dosage: 5 MG, DAILY
     Dates: start: 20110411
  4. AFINITOR [Suspect]
     Active Substance: EVEROLIMUS
     Dosage: 5 MG, UNK
     Dates: start: 20120116
  5. AFINITOR [Suspect]
     Active Substance: EVEROLIMUS
     Dosage: 10 MG, UNK
     Dates: start: 20120206
  6. AFINITOR [Suspect]
     Active Substance: EVEROLIMUS
     Dates: start: 201105, end: 201107
  7. AFINITOR [Suspect]
     Active Substance: EVEROLIMUS
     Dosage: 10 MG, UNK
     Dates: start: 20120402
  8. AFINITOR [Suspect]
     Active Substance: EVEROLIMUS
     Dates: start: 201108
  9. NEXAVAR [Suspect]
     Active Substance: SORAFENIB

REACTIONS (4)
  - Interstitial lung disease [Unknown]
  - Renal cancer [Unknown]
  - Metastases to kidney [Unknown]
  - Malignant neoplasm progression [Unknown]
